FAERS Safety Report 11092575 (Version 1)
Quarter: 2015Q2

REPORT INFORMATION
  Report Type: Spontaneous
  Country: US (occurrence: None)
  Receive Date: 20150505
  Receipt Date: 20150505
  Transmission Date: 20150821
  Serious: Yes (Other)
  Sender: FDA-Public Use
  Company Number: None

PATIENT
  Age: 39 Year
  Sex: Male

DRUGS (1)
  1. HARVONI [Suspect]
     Active Substance: LEDIPASVIR\SOFOSBUVIR
     Indication: HEPATITIS C
     Dosage: 90-400MG TABLET, 1 DAILY, ORAL
     Route: 048
     Dates: start: 20150316, end: 20150504

REACTIONS (2)
  - Diarrhoea [None]
  - Insomnia [None]

NARRATIVE: CASE EVENT DATE: 20150504
